FAERS Safety Report 19151030 (Version 1)
Quarter: 2021Q2

REPORT INFORMATION
  Report Type: Spontaneous
  Country: US (occurrence: US)
  Receive Date: 20210419
  Receipt Date: 20210419
  Transmission Date: 20210717
  Serious: No
  Sender: FDA-Public Use
  Company Number: US-ELI_LILLY_AND_COMPANY-US202103014389

PATIENT
  Sex: Female

DRUGS (3)
  1. HUMULIN R U?500 [Suspect]
     Active Substance: INSULIN HUMAN
     Dosage: 105 U, DAILY (AT LUNCH)
     Route: 065
     Dates: start: 202009
  2. HUMULIN R U?500 [Suspect]
     Active Substance: INSULIN HUMAN
     Indication: PRODUCT USED FOR UNKNOWN INDICATION
     Dosage: 125 U, EACH MORNING (AT BREAKAST)
     Route: 065
     Dates: start: 202009
  3. HUMULIN R U?500 [Suspect]
     Active Substance: INSULIN HUMAN
     Dosage: 95 U, EACH EVENING (AT DINNER)
     Route: 065
     Dates: start: 202009

REACTIONS (2)
  - Cataract [Unknown]
  - Blood glucose fluctuation [Unknown]
